FAERS Safety Report 4936071-3 (Version None)
Quarter: 2006Q1

REPORT INFORMATION
  Report Type: 
  Country: None (occurrence: None)
  Receive Date: 20060307
  Receipt Date: 20050928
  Transmission Date: 20060701
  Serious: No
  Sender: FDA-Public Use
  Company Number: US-GLAXOSMITHKLINE-A0576231A

PATIENT
  Age: 31 Year
  Sex: Male
  Weight: 90.9 kg

DRUGS (4)
  1. REQUIP [Suspect]
     Indication: RESTLESS LEGS SYNDROME
     Dosage: 2MG AT NIGHT
     Route: 048
     Dates: start: 20050801
  2. PENTASA [Concomitant]
     Dosage: 2000MG PER DAY
     Route: 048
  3. PURINETHOL [Concomitant]
     Dosage: 100MG PER DAY
     Route: 048
  4. PROTONIX [Concomitant]
     Dosage: 40MG PER DAY
     Route: 048

REACTIONS (3)
  - NAUSEA [None]
  - SNORING [None]
  - VISION BLURRED [None]
